FAERS Safety Report 8837768 (Version 1)
Quarter: 2012Q4

REPORT INFORMATION
  Report Type: 
  Country: ZA (occurrence: ZA)
  Receive Date: 20121012
  Receipt Date: 20121012
  Transmission Date: 20130627
  Serious: Yes (Hospitalization)
  Sender: FDA-Public Use
  Company Number: ZA-ROCHE-1143904

PATIENT
  Sex: Female

DRUGS (3)
  1. RECORMON [Suspect]
     Indication: PRODUCT USED FOR UNKNOWN INDICATION
     Route: 065
     Dates: start: 201205
  2. PEGASYS [Suspect]
     Indication: HEPATITIS C
     Route: 065
     Dates: start: 20120305
  3. COPEGUS [Suspect]
     Indication: HEPATITIS C
     Route: 065
     Dates: start: 20120305

REACTIONS (4)
  - Lymphadenopathy [Unknown]
  - Haemoglobin decreased [Unknown]
  - Fatigue [Unknown]
  - Chest pain [Unknown]
